FAERS Safety Report 8999013 (Version 1)
Quarter: 2013Q1

REPORT INFORMATION
  Report Type: Spontaneous
  Country: BR (occurrence: BR)
  Receive Date: 20130103
  Receipt Date: 20130103
  Transmission Date: 20140127
  Serious: Yes (Hospitalization, Other)
  Sender: FDA-Public Use
  Company Number: PHHY2013BR000991

PATIENT
  Age: 88 Year
  Sex: Female

DRUGS (1)
  1. DIOVAN HCT [Suspect]
     Indication: HYPERTENSION
     Dosage: 160 MG VALS, 25 MG HCT (DAILY)
     Route: 048

REACTIONS (4)
  - Haematochezia [Unknown]
  - Vomiting [Unknown]
  - Anaemia [Unknown]
  - Arrhythmia [Unknown]
